FAERS Safety Report 8514667-X (Version None)
Quarter: 2012Q3

REPORT INFORMATION
  Report Type: 
  Country: None (occurrence: None)
  Receive Date: 20120712
  Receipt Date: 20120712
  Transmission Date: 20120928
  Serious: Yes (Other)
  Sender: FDA-Public Use
  Company Number: None

PATIENT
  Age: 32 Year
  Sex: Female
  Weight: 81.6475 kg

DRUGS (1)
  1. TRAMADOL HCL [Suspect]

REACTIONS (20)
  - NAUSEA [None]
  - FEELING ABNORMAL [None]
  - HYPERHIDROSIS [None]
  - PALPITATIONS [None]
  - PHOTOPHOBIA [None]
  - FEELING COLD [None]
  - URINARY INCONTINENCE [None]
  - HEADACHE [None]
  - DIARRHOEA [None]
  - VERTIGO [None]
  - HALO VISION [None]
  - CHILLS [None]
  - GAIT DISTURBANCE [None]
  - MUSCLE DISORDER [None]
  - LOSS OF CONSCIOUSNESS [None]
  - INADEQUATE ANALGESIA [None]
  - COLD SWEAT [None]
  - PARAESTHESIA [None]
  - CONFUSIONAL STATE [None]
  - IMPAIRED DRIVING ABILITY [None]
